FAERS Safety Report 7135624-4 (Version None)
Quarter: 2010Q4

REPORT INFORMATION
  Report Type: 
  Country: None (occurrence: None)
  Receive Date: 20101203
  Receipt Date: 20101124
  Transmission Date: 20110411
  Serious: Yes (Other)
  Sender: FDA-Public Use
  Company Number: FR-PFIZER INC-2010152954

PATIENT
  Age: 36 Year
  Sex: Female

DRUGS (2)
  1. LYRICA [Suspect]
     Indication: NEURALGIA
     Dosage: 150 MG, 1X/DAY
     Dates: start: 20101102
  2. RIVOTRIL [Suspect]
     Indication: NEURALGIA
     Dosage: 2 MG, 1X/DAY
     Dates: start: 20101102

REACTIONS (1)
  - HEPATITIS [None]
